FAERS Safety Report 8503582-3 (Version None)
Quarter: 2012Q3

REPORT INFORMATION
  Report Type: 
  Country: None (occurrence: None)
  Receive Date: 20120711
  Receipt Date: 20120702
  Transmission Date: 20120928
  Serious: Yes (Hospitalization)
  Sender: FDA-Public Use
  Company Number: JP-VERTEX PHARMACEUTICALS INC.-AE-2012-009984

PATIENT
  Age: 59 Year
  Sex: Male

DRUGS (10)
  1. RIBAVIRIN [Concomitant]
     Route: 048
     Dates: start: 20120529
  2. FEBURIC [Concomitant]
     Route: 048
     Dates: start: 20120424, end: 20120605
  3. RIBAVIRIN [Concomitant]
     Route: 048
     Dates: start: 20120507, end: 20120514
  4. RIBAVIRIN [Concomitant]
     Route: 048
     Dates: start: 20120515, end: 20120528
  5. URINORM [Concomitant]
     Route: 048
  6. TELAVIC (TELAPREVIR) [Suspect]
     Indication: HEPATITIS C
     Route: 048
     Dates: start: 20120424
  7. RIBAVIRIN [Concomitant]
     Indication: HEPATITIS C
     Route: 048
     Dates: start: 20120424, end: 20120506
  8. PEGINTERFERON ALFA-2B [Concomitant]
     Indication: HEPATITIS C
     Route: 058
     Dates: start: 20120424
  9. URSO 250 [Concomitant]
     Route: 048
     Dates: end: 20120521
  10. OLMESARTAN MEDOXOMIL [Concomitant]
     Route: 048

REACTIONS (1)
  - PROSTATITIS [None]
